FAERS Safety Report 6939298-4 (Version None)
Quarter: 2010Q3

REPORT INFORMATION
  Report Type: 
  Country: None (occurrence: None)
  Receive Date: 20100824
  Receipt Date: 20100823
  Transmission Date: 20110219
  Serious: No
  Sender: FDA-Public Use
  Company Number: US-ROXANE LABORATORIES, INC.-2010-RO-00734RO

PATIENT
  Sex: Female

DRUGS (9)
  1. LITHIUM CARBONATE [Suspect]
     Indication: BIPOLAR DISORDER
     Dosage: 900 MG
     Route: 048
     Dates: start: 20000101, end: 20100712
  2. NEXIUM [Concomitant]
  3. RANITIDINE [Concomitant]
  4. KLONOPIN [Concomitant]
     Indication: ANXIETY
     Dosage: 2 MG
     Dates: start: 20081101
  5. ALLEGRA [Concomitant]
  6. IMITREX [Concomitant]
  7. INDERAL [Concomitant]
  8. PRIMIDONE [Concomitant]
  9. TRAZODONE HCL [Concomitant]
     Indication: DEPRESSION
     Dosage: 150 MG
     Dates: start: 19950101

REACTIONS (1)
  - RECURRING SKIN BOILS [None]
